FAERS Safety Report 8341630 (Version 2)
Quarter: 2013Q2

REPORT INFORMATION
  Report Type: Spontaneous
  Country: US (occurrence: None)
  Receive Date: 20111202
  Receipt Date: 20121203
  Transmission Date: 20140414
  Serious: Yes (Hospitalization)
  Sender: FDA-Public Use
  Company Number: 2011SP032589

PATIENT
  Age: 27 Year
  Sex: Female

DRUGS (1)
  1. NUVARING [Suspect]
     Indication: CONTRACEPTION
     Dates: start: 2006, end: 20081017

REACTIONS (12)
  - PULMONARY EMBOLISM [None]
  - DEEP VEIN THROMBOSIS [None]
  - Skin disorder [None]
  - Blood cholesterol increased [None]
  - Hypercoagulation [None]
  - Facial bones fracture [None]
  - Conjunctival haemorrhage [None]
  - Urinary tract infection [None]
  - Metrorrhagia [None]
  - Cervical dysplasia [None]
  - Cervical dysplasia [None]
  - Papilloma viral infection [None]
